FAERS Safety Report 19051554 (Version 1)
Quarter: 2021Q1

REPORT INFORMATION
  Report Type: Spontaneous
  Country: AU (occurrence: AU)
  Receive Date: 20210324
  Receipt Date: 20210324
  Transmission Date: 20210420
  Serious: Yes (Other)
  Sender: FDA-Public Use
  Company Number: AU-35507-2021-03519

PATIENT
  Sex: Female

DRUGS (1)
  1. LEVONORGESTREL?1 GH TABLET [Suspect]
     Active Substance: LEVONORGESTREL
     Indication: POST COITAL CONTRACEPTION
     Dosage: UNK
     Route: 065
     Dates: start: 20210218

REACTIONS (2)
  - Pregnancy after post coital contraception [Unknown]
  - Exposure during pregnancy [Unknown]

NARRATIVE: CASE EVENT DATE: 2021
